FAERS Safety Report 7489069-8 (Version None)
Quarter: 2011Q2

REPORT INFORMATION
  Report Type: 
  Country: None (occurrence: None)
  Receive Date: 20110518
  Receipt Date: 20110512
  Transmission Date: 20111010
  Serious: Yes (Death, Other)
  Sender: FDA-Public Use
  Company Number: US-JNJFOC-20110507368

PATIENT
  Age: 27 Year
  Sex: Female

DRUGS (5)
  1. VINCRISTINE [Suspect]
     Indication: ANGIOCENTRIC LYMPHOMA
     Route: 065
  2. CYCLOPHOSPHAMIDE [Suspect]
     Indication: ANGIOCENTRIC LYMPHOMA
     Route: 065
  3. PREDNISOLONE [Suspect]
     Indication: ANGIOCENTRIC LYMPHOMA
     Route: 065
  4. RADIATION THERAPY NOS [Suspect]
     Indication: ANGIOCENTRIC LYMPHOMA
     Route: 065
  5. DOXORUBICIN HCL [Suspect]
     Indication: ANGIOCENTRIC LYMPHOMA
     Route: 042

REACTIONS (3)
  - ANGIOCENTRIC LYMPHOMA [None]
  - PLEURAL EFFUSION [None]
  - CARDIAC FAILURE CONGESTIVE [None]
